FAERS Safety Report 9216682 (Version 1)
Quarter: 2013Q2

REPORT INFORMATION
  Report Type: Spontaneous
  Country: US (occurrence: US)
  Receive Date: 20130408
  Receipt Date: 20130408
  Transmission Date: 20140414
  Serious: No
  Sender: FDA-Public Use
  Company Number: US-PFIZER INC-2013103175

PATIENT
  Age: 22 Year
  Sex: Female
  Weight: 56.69 kg

DRUGS (3)
  1. ALAVERT [Suspect]
     Indication: SEASONAL ALLERGY
     Dosage: 10 MG, DAILY
     Dates: end: 20130329
  2. NORETHINDRONE [Concomitant]
     Dosage: UNK
  3. CYCLAFEM [Concomitant]
     Indication: CONTRACEPTION
     Dosage: 1/0.035 MG

REACTIONS (4)
  - Rash [Recovered/Resolved]
  - Rash papular [Recovered/Resolved]
  - Nasal congestion [Recovered/Resolved]
  - Cough [Recovered/Resolved]
